FAERS Safety Report 5470037-2 (Version None)
Quarter: 2007Q3

REPORT INFORMATION
  Report Type: 
  Country: None (occurrence: None)
  Receive Date: 20070927
  Receipt Date: 20070517
  Transmission Date: 20080115
  Serious: No
  Sender: FDA-Public Use
  Company Number: US-BOEHRINGER INGELHEIM PHARMACEUTICALS, INC.-2006-BP-09117BP

PATIENT
  Sex: Female

DRUGS (44)
  1. MIRAPEX [Suspect]
     Indication: PARKINSON'S DISEASE
     Route: 048
     Dates: start: 19990504, end: 20031201
  2. SINEMET [Concomitant]
     Indication: PARKINSON'S DISEASE
     Route: 048
     Dates: start: 19940201
  3. OXYGEN [Concomitant]
     Indication: SLEEP APNOEA SYNDROME
     Route: 055
  4. COMTAN [Concomitant]
     Indication: PARKINSON'S DISEASE
     Route: 048
     Dates: start: 20031001
  5. STALEVO 100 [Concomitant]
     Indication: PARKINSON'S DISEASE
     Dates: start: 20040201
  6. TRIAMTERENE [Concomitant]
  7. KLONOPIN [Concomitant]
     Indication: DYSTONIA
     Dates: start: 20040101, end: 20040101
  8. CELEXA [Concomitant]
     Indication: DYSTONIA
  9. SKELAXIN [Concomitant]
  10. MICRO-K [Concomitant]
     Route: 048
  11. LASIX [Concomitant]
     Indication: OEDEMA PERIPHERAL
  12. VIOXX [Concomitant]
  13. ELDEPRYL [Concomitant]
  14. ASCORBIC ACID [Concomitant]
  15. SIMETHICONE [Concomitant]
     Indication: FLATULENCE
  16. SIMETHICONE [Concomitant]
     Indication: DYSPEPSIA
  17. LORTAB [Concomitant]
     Indication: PAIN
  18. COLACE [Concomitant]
  19. ZEASORB [Concomitant]
  20. TAMOXIFEN CITRATE [Concomitant]
     Dates: start: 20010201, end: 20010411
  21. EXCEDRIN (MIGRAINE) [Concomitant]
  22. PLACEBO OR [FEMERA] [Concomitant]
  23. [PLACEBO] OR FEMERA [Concomitant]
  24. CELEBREX [Concomitant]
     Indication: ARTHRITIS
  25. MULTI-VITAMIN [Concomitant]
  26. CALCIUM [Concomitant]
  27. FLEXERIL [Concomitant]
  28. COUMADIN [Concomitant]
  29. BETAMETHASONE [Concomitant]
  30. ZAROXOLYN [Concomitant]
     Dates: start: 20020101
  31. DYAZIDE [Concomitant]
     Route: 048
  32. MIDRIN [Concomitant]
     Indication: HEADACHE
  33. PREMPRO [Concomitant]
  34. NORVASC [Concomitant]
  35. LIPITOR [Concomitant]
  36. ATENOLOL [Concomitant]
  37. FLONASE [Concomitant]
  38. PROZAC [Concomitant]
  39. TOPROL-XL [Concomitant]
  40. ALLEGRA D 24 HOUR [Concomitant]
  41. SYNTHROID [Concomitant]
  42. EFFEXOR XR [Concomitant]
  43. GLUCOTROL XL [Concomitant]
  44. ALBUTEROL [Concomitant]

REACTIONS (3)
  - ANXIETY [None]
  - DEPRESSION [None]
  - PATHOLOGICAL GAMBLING [None]
